FAERS Safety Report 18776858 (Version 3)
Quarter: 2022Q2

REPORT INFORMATION
  Report Type: Spontaneous
  Country: PL (occurrence: PL)
  Receive Date: 20210122
  Receipt Date: 20220407
  Transmission Date: 20220721
  Serious: Yes (Hospitalization, Other)
  Sender: FDA-Public Use
  Company Number: PL-PFIZER INC-2021038600

PATIENT
  Age: 68 Year
  Sex: Male

DRUGS (14)
  1. ATORVASTATIN CALCIUM [Interacting]
     Active Substance: ATORVASTATIN CALCIUM
     Dosage: 40 MG
     Route: 048
  2. FLUCONAZOLE [Interacting]
     Active Substance: FLUCONAZOLE
     Indication: Infection
     Dosage: 100 MG, 2X/DAY
  3. FLUCONAZOLE [Interacting]
     Active Substance: FLUCONAZOLE
     Indication: Pruritus genital
     Dosage: FREQ:12 H;100 MG, 2X/DAY
     Route: 048
  4. FLUCONAZOLE [Interacting]
     Active Substance: FLUCONAZOLE
     Indication: Antibiotic prophylaxis
  5. CETIRIZINE [Interacting]
     Active Substance: CETIRIZINE HYDROCHLORIDE
     Indication: Pruritus genital
     Dosage: 10 MG, QD
  6. CIPROFLOXACIN [Interacting]
     Active Substance: CIPROFLOXACIN
     Indication: Pruritus genital
     Dosage: FREQ:12 H;500 MG, BID
     Route: 048
  7. CIPROFLOXACIN [Interacting]
     Active Substance: CIPROFLOXACIN
     Indication: Antibiotic prophylaxis
  8. FUROSEMIDE [Interacting]
     Active Substance: FUROSEMIDE
     Indication: Atrial fibrillation
     Dosage: 40 MG
     Route: 048
  9. FUROSEMIDE [Interacting]
     Active Substance: FUROSEMIDE
     Indication: Cerebrovascular accident
     Dosage: 40 MILLIGRAM
     Route: 048
  10. QUETIAPINE [Interacting]
     Active Substance: QUETIAPINE
     Indication: Insomnia
     Dosage: 25 MG AT BEDTIME
  11. QUETIAPINE [Interacting]
     Active Substance: QUETIAPINE
     Dosage: 50 MG AT BEDTIME
  12. RIVAROXABAN [Interacting]
     Active Substance: RIVAROXABAN
     Indication: Cerebrovascular accident
     Dosage: 20 MILLIGRAM
     Route: 048
  13. RIVAROXABAN [Interacting]
     Active Substance: RIVAROXABAN
     Indication: Atrial fibrillation
  14. METOPROLOL [Concomitant]
     Active Substance: METOPROLOL
     Dosage: 100 MG

REACTIONS (4)
  - Drug interaction [Recovered/Resolved]
  - Penis injury [Unknown]
  - Penile haemorrhage [Recovered/Resolved]
  - Pruritus genital [Recovered/Resolved]
